FAERS Safety Report 10231485 (Version 1)
Quarter: 2014Q2

REPORT INFORMATION
  Report Type: Spontaneous
  Country: US (occurrence: US)
  Receive Date: 20140611
  Receipt Date: 20140611
  Transmission Date: 20141212
  Serious: No
  Sender: FDA-Public Use
  Company Number: US-TEVA-486993USA

PATIENT
  Sex: Female
  Weight: 95.34 kg

DRUGS (3)
  1. ACTIQ [Suspect]
     Indication: COMPLEX REGIONAL PAIN SYNDROME
     Route: 048
  2. EXALGO [Concomitant]
     Indication: COMPLEX REGIONAL PAIN SYNDROME
  3. DIAZEPAM [Concomitant]
     Indication: COMPLEX REGIONAL PAIN SYNDROME

REACTIONS (3)
  - Drug withdrawal syndrome [Not Recovered/Not Resolved]
  - Feeling abnormal [Not Recovered/Not Resolved]
  - Off label use [Unknown]
